FAERS Safety Report 21643075 (Version 1)
Quarter: 2022Q4

REPORT INFORMATION
  Report Type: Report from Study
  Country: MX (occurrence: MX)
  Receive Date: 20221125
  Receipt Date: 20221125
  Transmission Date: 20230112
  Serious: Yes (Other)
  Sender: FDA-Public Use
  Company Number: MX-002147023-NVSC2022MX265106

PATIENT
  Age: 78 Year
  Sex: Female
  Weight: 43 kg

DRUGS (5)
  1. EXELON [Suspect]
     Active Substance: RIVASTIGMINE TARTRATE
     Indication: Cognitive disorder
     Dosage: 4.6 MG, QD PATCH 5 (CM2 )
     Route: 062
     Dates: start: 20201126, end: 20201210
  2. EXELON [Suspect]
     Active Substance: RIVASTIGMINE TARTRATE
     Dosage: 9.5 MG, QD PATCH 10 (CM2 )
     Route: 062
     Dates: start: 20201210, end: 202205
  3. EXELON [Suspect]
     Active Substance: RIVASTIGMINE TARTRATE
     Dosage: 9.5 MG, QD PATCH 10 (CM2 )
     Route: 062
     Dates: start: 20221010
  4. MEMANTINE HYDROCHLORIDE [Concomitant]
     Active Substance: MEMANTINE HYDROCHLORIDE
     Indication: Product used for unknown indication
     Dosage: 10 MG
     Route: 065
     Dates: start: 20201126
  5. TEBAMIN [Concomitant]
     Indication: Product used for unknown indication
     Dosage: 80 MG
     Route: 065
     Dates: start: 20201126

REACTIONS (7)
  - Breast cancer [Recovered/Resolved]
  - Neuropathy peripheral [Recovered/Resolved]
  - Application site pain [Recovered/Resolved]
  - Nausea [Recovered/Resolved]
  - Vomiting [Recovered/Resolved]
  - Weight decreased [Recovering/Resolving]
  - Off label use [Not Recovered/Not Resolved]

NARRATIVE: CASE EVENT DATE: 20201126
